FAERS Safety Report 8525235 (Version 2)
Quarter: 2012Q4

REPORT INFORMATION
  Report Type: 
  Country: FR (occurrence: FR)
  Receive Date: 20120423
  Receipt Date: 20120910
  Transmission Date: 20130627
  Serious: Yes (Other)
  Sender: FDA-Public Use
  Company Number: PHHY2012FR033713

PATIENT
  Age: 70 Year
  Sex: Female

DRUGS (4)
  1. ZOMETA [Suspect]
     Indication: BREAST CANCER
     Dosage: UNK UKN, UNK
     Route: 042
     Dates: start: 20100415, end: 201010
  2. FEMARA [Suspect]
     Indication: BREAST CANCER
     Dosage: 1 DF, QD
     Route: 048
     Dates: start: 20100401
  3. XELODA [Suspect]
     Indication: BREAST CANCER
     Dosage: UNK UKN, UNK
     Dates: start: 20100420, end: 20100421
  4. XELODA [Suspect]
     Dosage: UNK UKN, UNK
     Dates: end: 201010

REACTIONS (4)
  - Osteonecrosis of jaw [Recovered/Resolved with Sequelae]
  - Breath odour [Unknown]
  - Pain in jaw [Recovered/Resolved]
  - Hypoaesthesia [Not Recovered/Not Resolved]
